FAERS Safety Report 19713691 (Version 2)
Quarter: 2021Q3

REPORT INFORMATION
  Report Type: Report from Study
  Country: CA (occurrence: CA)
  Receive Date: 20210817
  Receipt Date: 20210917
  Transmission Date: 20211014
  Serious: Yes (Other)
  Sender: FDA-Public Use
  Company Number: CA-JNJFOC-20210821048

PATIENT
  Age: 43 Year
  Sex: Male

DRUGS (1)
  1. REMICADE [Suspect]
     Active Substance: INFLIXIMAB
     Indication: COLITIS ULCERATIVE
     Dosage: ON 10?AUG?2021, THE PATIENT RECEIVED 11TH INFLIXIMAB INFUSION FOR DOSE OF 1000MG ONCE IN 4 WEEK AND
     Route: 042
     Dates: start: 20210110

REACTIONS (2)
  - Clostridium difficile infection [Recovering/Resolving]
  - General physical health deterioration [Unknown]

NARRATIVE: CASE EVENT DATE: 2021
